FAERS Safety Report 6105995-6 (Version None)
Quarter: 2009Q1

REPORT INFORMATION
  Report Type: 
  Country: None (occurrence: None)
  Receive Date: 20090306
  Receipt Date: 20081210
  Transmission Date: 20090719
  Serious: Yes (Life-Threatening)
  Sender: FDA-Public Use
  Company Number: US-BRISTOL-MYERS SQUIBB COMPANY-14439087

PATIENT
  Age: 69 Year
  Sex: Female
  Weight: 68 kg

DRUGS (4)
  1. TAXOL [Suspect]
     Indication: BREAST CANCER
     Dosage: 3 DOSES GIVEN.
  2. PAXIL [Concomitant]
  3. GLYBURIDE [Concomitant]
  4. METFORMIN [Concomitant]

REACTIONS (1)
  - HEPATITIS [None]
